FAERS Safety Report 20702614 (Version 3)
Quarter: 2022Q2

REPORT INFORMATION
  Report Type: Report from Study
  Country: NL (occurrence: NL)
  Receive Date: 20220412
  Receipt Date: 20220621
  Transmission Date: 20220721
  Serious: Yes (Hospitalization)
  Sender: FDA-Public Use
  Company Number: NL-ABBVIE-22P-114-4344512-00

PATIENT
  Age: 77 Year
  Sex: Female
  Weight: 60 kg

DRUGS (10)
  1. VENETOCLAX [Suspect]
     Active Substance: VENETOCLAX
     Indication: Myelodysplastic syndrome
     Dosage: DAYS 1  14 OF EACH 28-DAY CYCLE
     Route: 048
     Dates: start: 20220321, end: 20220401
  2. VENETOCLAX [Suspect]
     Active Substance: VENETOCLAX
     Dosage: DAYS 1  14 OF EACH 28-DAY CYCLE
     Route: 048
     Dates: start: 20220419
  3. AZACITIDINE [Suspect]
     Active Substance: AZACITIDINE
     Indication: Myelodysplastic syndrome
     Dosage: 7 DAYS WITHIN THE FIRST 9 CALENDAR DAYS OF EACH 28-DAY CYCLE
     Route: 058
     Dates: start: 20220321
  4. ACETAMINOPHEN [Concomitant]
     Active Substance: ACETAMINOPHEN
     Indication: Bone pain
     Route: 048
     Dates: start: 2022
  5. POLYETHYLENE GLYCOLS [Concomitant]
     Active Substance: POLYETHYLENE GLYCOLS
     Indication: Constipation prophylaxis
     Route: 048
     Dates: start: 20220321
  6. GRANISETRON [Concomitant]
     Active Substance: GRANISETRON
     Indication: Prophylaxis of nausea and vomiting
     Route: 048
     Dates: start: 20220321
  7. OXYCODONE [Concomitant]
     Active Substance: OXYCODONE
     Indication: Bone pain
     Route: 048
     Dates: start: 20220321
  8. HYDROXOCOBALAMIN [Concomitant]
     Active Substance: HYDROXOCOBALAMIN
     Indication: Anaemia
     Route: 058
     Dates: start: 20220321
  9. FOLIC ACID [Concomitant]
     Active Substance: FOLIC ACID
     Indication: Anaemia
     Route: 048
     Dates: start: 20220321
  10. DICLOFENAC [Concomitant]
     Active Substance: DICLOFENAC
     Indication: Injection site pain
     Route: 003
     Dates: start: 20220321

REACTIONS (1)
  - Atrial fibrillation [Recovered/Resolved]

NARRATIVE: CASE EVENT DATE: 20220401
